FAERS Safety Report 12181508 (Version 1)
Quarter: 2016Q1

REPORT INFORMATION
  Report Type: Spontaneous
  Country: TR (occurrence: TR)
  Receive Date: 20160315
  Receipt Date: 20160315
  Transmission Date: 20160526
  Serious: Yes (Hospitalization)
  Sender: FDA-Public Use
  Company Number: TR-SA-2016SA048442

PATIENT
  Age: 54 Year
  Sex: Male
  Weight: 65 kg

DRUGS (3)
  1. ASPIRIN. [Suspect]
     Active Substance: ASPIRIN
     Indication: THROMBOSIS PROPHYLAXIS
     Route: 065
  2. TICAGRELOR [Suspect]
     Active Substance: TICAGRELOR
     Indication: THROMBOSIS PROPHYLAXIS
     Route: 065
  3. ENOXAPARIN SODIUM. [Suspect]
     Active Substance: ENOXAPARIN SODIUM
     Indication: PROPHYLAXIS
     Route: 065

REACTIONS (11)
  - Blood pressure diastolic decreased [Unknown]
  - Acute respiratory distress syndrome [Unknown]
  - Lung infiltration [Recovering/Resolving]
  - Dyspnoea [Unknown]
  - Haemoglobin decreased [Unknown]
  - Pulmonary alveolar haemorrhage [Recovering/Resolving]
  - Pulmonary haemorrhage [Unknown]
  - Activated partial thromboplastin time shortened [Unknown]
  - Haemoptysis [Recovered/Resolved]
  - International normalised ratio decreased [Unknown]
  - Tachypnoea [Unknown]
